FAERS Safety Report 7374639-8 (Version None)
Quarter: 2011Q1

REPORT INFORMATION
  Report Type: 
  Country: None (occurrence: None)
  Receive Date: 20110325
  Receipt Date: 20100604
  Transmission Date: 20110831
  Serious: No
  Sender: FDA-Public Use
  Company Number: US-MYLANLABS-2010S1010082

PATIENT
  Age: 52 Year
  Sex: Male

DRUGS (4)
  1. LYRICA [Concomitant]
     Route: 048
     Dates: start: 20080101
  2. CLONAZEPAM [Concomitant]
     Route: 048
     Dates: start: 20080101
  3. FENTANYL-100 [Suspect]
     Indication: PAIN
     Dosage: Q3D
     Route: 062
     Dates: start: 20100401
  4. TRAMADOL HCL [Concomitant]
     Route: 048
     Dates: start: 20070101

REACTIONS (1)
  - BODY TEMPERATURE FLUCTUATION [None]
